FAERS Safety Report 20429438 (Version 1)
Quarter: 2022Q1

REPORT INFORMATION
  Report Type: Spontaneous
  Country: US (occurrence: US)
  Receive Date: 20220204
  Receipt Date: 20220204
  Transmission Date: 20220423
  Serious: No
  Sender: FDA-Public Use
  Company Number: US-BEH-2022141712

PATIENT
  Sex: Female

DRUGS (4)
  1. HIZENTRA [Suspect]
     Active Substance: HUMAN IMMUNOGLOBULIN G
     Indication: Immunodeficiency common variable
     Dosage: 15 GRAM, QW
     Route: 058
     Dates: start: 20220111
  2. HIZENTRA [Suspect]
     Active Substance: HUMAN IMMUNOGLOBULIN G
     Indication: Immunodeficiency common variable
  3. ROGAINE [Suspect]
     Active Substance: MINOXIDIL
     Indication: Alopecia
  4. ROGAINE [Suspect]
     Active Substance: MINOXIDIL
     Indication: Alopecia

REACTIONS (4)
  - Alopecia [Unknown]
  - Swelling face [Recovered/Resolved]
  - Joint swelling [Unknown]
  - Peripheral swelling [Unknown]
